FAERS Safety Report 4971971-X (Version None)
Quarter: 2006Q2

REPORT INFORMATION
  Report Type: 
  Country: None (occurrence: None)
  Receive Date: 20060413
  Receipt Date: 20060222
  Transmission Date: 20061013
  Serious: Yes (Death, Other)
  Sender: FDA-Public Use
  Company Number: DE-MERCK-0602DEU00121

PATIENT
  Age: 58 Year
  Sex: Male
  Weight: 103 kg

DRUGS (7)
  1. CANCIDAS [Suspect]
     Indication: PNEUMONIA FUNGAL
     Route: 051
     Dates: start: 20060216, end: 20060328
  2. RANITIDINE [Concomitant]
     Route: 048
  3. TORSEMIDE [Concomitant]
     Route: 048
  4. CONCOR [Concomitant]
     Route: 048
  5. CEFTRIAXONE SODIUM [Concomitant]
     Indication: FEBRILE NEUTROPENIA
     Route: 051
     Dates: start: 20060101, end: 20060201
  6. CIPROFLOXACIN [Concomitant]
     Indication: FEBRILE NEUTROPENIA
     Route: 048
     Dates: start: 20060101, end: 20060201
  7. FUROSEMIDE [Concomitant]
     Route: 048

REACTIONS (3)
  - RASH [None]
  - RENAL FAILURE ACUTE [None]
  - SEPSIS [None]
